FAERS Safety Report 13850793 (Version 2)
Quarter: 2017Q3

REPORT INFORMATION
  Report Type: Report from Study
  Country: None (occurrence: TW)
  Receive Date: 20170810
  Receipt Date: 20170810
  Transmission Date: 20171127
  Serious: Yes (Death, Other)
  Sender: FDA-Public Use
  Company Number: TW-ABBVIE-17K-153-2065839-00

PATIENT
  Age: 74 Year
  Sex: Male
  Weight: 53.5 kg

DRUGS (1)
  1. HUMIRA [Suspect]
     Active Substance: ADALIMUMAB
     Indication: RHEUMATOID ARTHRITIS
     Route: 058
     Dates: start: 20110201, end: 20170724

REACTIONS (4)
  - Death [Fatal]
  - Headache [Unknown]
  - Product packaging issue [Unknown]
  - Fall [Unknown]

NARRATIVE: CASE EVENT DATE: 20170724
